FAERS Safety Report 9437159 (Version 2)
Quarter: 2013Q3

REPORT INFORMATION
  Report Type: Spontaneous
  Country: US (occurrence: PR)
  Receive Date: 20130802
  Receipt Date: 20130821
  Transmission Date: 20140515
  Serious: Yes (Other)
  Sender: FDA-Public Use
  Company Number: US-BAYER-2013-093398

PATIENT
  Age: 33 Year
  Sex: Male
  Weight: 72 kg

DRUGS (5)
  1. CIPRO [Suspect]
     Indication: ABSCESS LIMB
     Dosage: 2 DF, QD
     Route: 048
     Dates: start: 20130715, end: 20130715
  2. COPAXONE [Concomitant]
     Indication: MITRAL VALVE STENOSIS
     Dosage: 20 MG, QD
     Dates: start: 20121103
  3. FOSAMAX [Concomitant]
     Indication: OSTEOPOROSIS
     Dosage: 70 MG, OW
     Dates: start: 201308
  4. CATAFLAM [DICLOFENAC POTASSIUM] [Concomitant]
     Indication: PAIN
     Dosage: 50 MG, UNK
     Dates: start: 201303
  5. NEURONTIN [Concomitant]
     Indication: PAIN
     Dosage: 800 MG, HS
     Dates: start: 201303

REACTIONS (4)
  - Drug hypersensitivity [None]
  - Erythema [None]
  - Pruritus [None]
  - Skin burning sensation [None]
